FAERS Safety Report 7683581-4 (Version None)
Quarter: 2011Q3

REPORT INFORMATION
  Report Type: 
  Country: None (occurrence: None)
  Receive Date: 20110815
  Receipt Date: 20110804
  Transmission Date: 20111222
  Serious: Yes (Hospitalization, Other)
  Sender: FDA-Public Use
  Company Number: FR-JNJFOC-20110803792

PATIENT
  Sex: Male

DRUGS (4)
  1. FENOFIBRATE [Concomitant]
  2. XARELTO [Suspect]
     Indication: THROMBOSIS PROPHYLAXIS
     Route: 048
     Dates: start: 20110414, end: 20110419
  3. BISOPROLOL FUMARATE AND HYDROCHLOROTHIAZIDE [Concomitant]
  4. CELEBREX [Suspect]
     Indication: ILL-DEFINED DISORDER
     Route: 048
     Dates: start: 20110416, end: 20110422

REACTIONS (2)
  - ANAEMIA [None]
  - VENOUS THROMBOSIS LIMB [None]
